FAERS Safety Report 15611577 (Version 1)
Quarter: 2018Q4

REPORT INFORMATION
  Report Type: Spontaneous
  Country: FR (occurrence: FR)
  Receive Date: 20181113
  Receipt Date: 20181113
  Transmission Date: 20190205
  Serious: Yes (Hospitalization, Other)
  Sender: FDA-Public Use
  Company Number: FR-ACCORD-091442

PATIENT
  Age: 62 Year
  Sex: Male
  Weight: 112 kg

DRUGS (8)
  1. ATORVASTATIN/ATORVASTATIN CALCIUM [Suspect]
     Active Substance: ATORVASTATIN CALCIUM
  2. AMLODIPINE [Suspect]
     Active Substance: AMLODIPINE BESYLATE
  3. HYDROCHLOROTHIAZIDE. [Suspect]
     Active Substance: HYDROCHLOROTHIAZIDE
  4. CLOMIPRAMINE/CLOMIPRAMINE HYDROCHLORIDE [Suspect]
     Active Substance: CLOMIPRAMINE
  5. POTASSIUM [Suspect]
     Active Substance: POTASSIUM
  6. PARACETAMOL [Suspect]
     Active Substance: ACETAMINOPHEN
     Dosage: 4 G
  7. APIXABAN [Suspect]
     Active Substance: APIXABAN
     Dosage: 230 MG
     Route: 048
  8. BISOPROLOL [Suspect]
     Active Substance: BISOPROLOL

REACTIONS (3)
  - Hypovolaemic shock [Unknown]
  - Overdose [Unknown]
  - Toxicity to various agents [Unknown]
